FAERS Safety Report 4842238-5 (Version None)
Quarter: 2005Q4

REPORT INFORMATION
  Report Type: 
  Country: None (occurrence: None)
  Receive Date: 20051125
  Receipt Date: 20051115
  Transmission Date: 20060501
  Serious: Yes (Hospitalization, Other)
  Sender: FDA-Public Use
  Company Number: 2005156879

PATIENT
  Sex: Male
  Weight: 79.3795 kg

DRUGS (9)
  1. LIPITOR [Suspect]
     Indication: BLOOD CHOLESTEROL INCREASED
     Dosage: 10 MG (10 MG, 1 IN 1 D), ORAL
     Route: 048
  2. LIPITOR [Suspect]
     Indication: BLOOD TRIGLYCERIDES INCREASED
     Dosage: 10 MG (10 MG, 1 IN 1 D), ORAL
     Route: 048
  3. ZOLOFT [Suspect]
     Indication: MALAISE
     Dosage: 50 MG (50 MG, 1 IN 1 D), ORAL
     Route: 048
  4. COREG [Concomitant]
  5. COZAAR [Concomitant]
  6. FUROSEMIDE [Concomitant]
  7. LANOXIN [Concomitant]
  8. SPIRONOLACTONE [Concomitant]
  9. ASPIRIN [Concomitant]

REACTIONS (10)
  - ANTIDEPRESSANT THERAPY [None]
  - CARDIAC FAILURE CONGESTIVE [None]
  - ECONOMIC PROBLEM [None]
  - INAPPROPRIATE SCHEDULE OF DRUG ADMINISTRATION [None]
  - MUSCULOSKELETAL DISORDER [None]
  - MYOCARDIAL INFARCTION [None]
  - PAIN IN EXTREMITY [None]
  - PNEUMONIA [None]
  - ULCER HAEMORRHAGE [None]
  - VASCULAR OPERATION [None]
